FAERS Safety Report 11736693 (Version 3)
Quarter: 2017Q1

REPORT INFORMATION
  Report Type: Spontaneous
  Country: US (occurrence: US)
  Receive Date: 20151113
  Receipt Date: 20170329
  Transmission Date: 20170428
  Serious: Yes (Other)
  Sender: FDA-Public Use
  Company Number: US-JNJFOC-20151003536

PATIENT
  Age: 59 Year
  Sex: Male
  Weight: 106.6 kg

DRUGS (24)
  1. LEVAQUIN [Suspect]
     Active Substance: LEVOFLOXACIN
     Indication: GALLBLADDER DISORDER
     Route: 048
     Dates: start: 20090304, end: 20090310
  2. LEVAQUIN [Suspect]
     Active Substance: LEVOFLOXACIN
     Indication: GALLBLADDER DISORDER
     Route: 048
     Dates: start: 20100830
  3. LEVAQUIN [Suspect]
     Active Substance: LEVOFLOXACIN
     Indication: GALLBLADDER DISORDER
     Route: 048
     Dates: start: 20100524
  4. LEVAQUIN [Suspect]
     Active Substance: LEVOFLOXACIN
     Indication: GALLBLADDER DISORDER
     Route: 048
     Dates: start: 20100625
  5. LEVAQUIN [Suspect]
     Active Substance: LEVOFLOXACIN
     Indication: LUNG DISORDER
     Route: 048
     Dates: start: 20101226, end: 20110102
  6. LEVAQUIN [Suspect]
     Active Substance: LEVOFLOXACIN
     Indication: GALLBLADDER DISORDER
     Route: 048
     Dates: start: 20101210, end: 20101219
  7. LEVAQUIN [Suspect]
     Active Substance: LEVOFLOXACIN
     Indication: LUNG DISORDER
     Route: 048
     Dates: start: 20101210, end: 20101219
  8. LEVAQUIN [Suspect]
     Active Substance: LEVOFLOXACIN
     Indication: BRONCHITIS
     Route: 048
     Dates: start: 20091209
  9. LEVAQUIN [Suspect]
     Active Substance: LEVOFLOXACIN
     Indication: BRONCHITIS
     Route: 048
     Dates: start: 20100907, end: 20100917
  10. LEVAQUIN [Suspect]
     Active Substance: LEVOFLOXACIN
     Indication: LUNG DISORDER
     Route: 048
     Dates: start: 20091209
  11. LEVAQUIN [Suspect]
     Active Substance: LEVOFLOXACIN
     Indication: LUNG DISORDER
     Route: 048
     Dates: start: 20100524
  12. LEVAQUIN [Suspect]
     Active Substance: LEVOFLOXACIN
     Indication: LUNG DISORDER
     Route: 048
     Dates: start: 20100907, end: 20100917
  13. LEVAQUIN [Suspect]
     Active Substance: LEVOFLOXACIN
     Indication: BRONCHITIS
     Route: 048
     Dates: start: 20090304, end: 20090310
  14. LEVAQUIN [Suspect]
     Active Substance: LEVOFLOXACIN
     Indication: LUNG DISORDER
     Route: 048
     Dates: start: 20100625
  15. LEVAQUIN [Suspect]
     Active Substance: LEVOFLOXACIN
     Indication: BRONCHITIS
     Route: 048
     Dates: start: 20100830
  16. LEVAQUIN [Suspect]
     Active Substance: LEVOFLOXACIN
     Indication: BRONCHITIS
     Route: 048
     Dates: start: 20100524
  17. LEVAQUIN [Suspect]
     Active Substance: LEVOFLOXACIN
     Indication: BRONCHITIS
     Route: 048
     Dates: start: 20101226, end: 20110102
  18. LEVAQUIN [Suspect]
     Active Substance: LEVOFLOXACIN
     Indication: BRONCHITIS
     Route: 048
     Dates: start: 20101210, end: 20101219
  19. LEVAQUIN [Suspect]
     Active Substance: LEVOFLOXACIN
     Indication: GALLBLADDER DISORDER
     Route: 048
     Dates: start: 20100907, end: 20100917
  20. LEVAQUIN [Suspect]
     Active Substance: LEVOFLOXACIN
     Indication: GALLBLADDER DISORDER
     Route: 048
     Dates: start: 20091209
  21. LEVAQUIN [Suspect]
     Active Substance: LEVOFLOXACIN
     Indication: BRONCHITIS
     Route: 048
     Dates: start: 20100625
  22. LEVAQUIN [Suspect]
     Active Substance: LEVOFLOXACIN
     Indication: GALLBLADDER DISORDER
     Route: 048
     Dates: start: 20101226, end: 20110102
  23. LEVAQUIN [Suspect]
     Active Substance: LEVOFLOXACIN
     Indication: LUNG DISORDER
     Route: 048
     Dates: start: 20090304, end: 20090310
  24. LEVAQUIN [Suspect]
     Active Substance: LEVOFLOXACIN
     Indication: LUNG DISORDER
     Route: 048
     Dates: start: 20100830

REACTIONS (1)
  - Neuropathy peripheral [Not Recovered/Not Resolved]

NARRATIVE: CASE EVENT DATE: 200912
